FAERS Safety Report 12889430 (Version 1)
Quarter: 2016Q4

REPORT INFORMATION
  Report Type: Spontaneous
  Country: US (occurrence: US)
  Receive Date: 20161027
  Receipt Date: 20161027
  Transmission Date: 20170207
  Serious: Yes (Hospitalization, Other)
  Sender: FDA-Public Use
  Company Number: US-BAYER-2016-202120

PATIENT
  Age: 81 Year
  Sex: Female
  Weight: 68.27 kg

DRUGS (10)
  1. EFFEXOR [Suspect]
     Active Substance: VENLAFAXINE HYDROCHLORIDE
     Dosage: UNK
     Dates: start: 201606
  2. SYNTHROID [Concomitant]
     Active Substance: LEVOTHYROXINE SODIUM
  3. GALANTAMINE. [Concomitant]
     Active Substance: GALANTAMINE
  4. ATORVASTATIN [Concomitant]
     Active Substance: ATORVASTATIN
  5. INSULIN [Concomitant]
     Active Substance: INSULIN NOS
  6. LOSARTAN. [Concomitant]
     Active Substance: LOSARTAN
  7. PANCREASE MT [Concomitant]
     Active Substance: PANCRELIPASE
  8. CARVEDILOL. [Concomitant]
     Active Substance: CARVEDILOL
  9. CIPRO [Suspect]
     Active Substance: CIPROFLOXACIN HYDROCHLORIDE
     Indication: URINARY TRACT INFECTION
     Dosage: UNK
     Dates: start: 20160924
  10. POTASSIUM [Concomitant]
     Active Substance: POTASSIUM

REACTIONS (5)
  - Conversion disorder [Recovered/Resolved]
  - Muscular weakness [Recovered/Resolved]
  - Paresis [Recovering/Resolving]
  - Dysstasia [Recovered/Resolved]
  - Pruritus [Recovered/Resolved]

NARRATIVE: CASE EVENT DATE: 20160924
